FAERS Safety Report 5497439-2 (Version None)
Quarter: 2007Q4

REPORT INFORMATION
  Report Type: 
  Country: None (occurrence: None)
  Receive Date: 20071025
  Receipt Date: 20061204
  Transmission Date: 20080405
  Serious: No
  Sender: FDA-Public Use
  Company Number: A0627664A

PATIENT
  Sex: Female

DRUGS (5)
  1. ADVAIR DISKUS 100/50 [Suspect]
     Indication: ASTHMA
     Route: 055
     Dates: start: 20040101
  2. ALLERGY MEDICATION [Concomitant]
  3. BLOOD PRESSURE MEDICATION [Concomitant]
  4. ALBUTEROL [Concomitant]
  5. NEBULIZER [Concomitant]

REACTIONS (3)
  - ADVERSE EVENT [None]
  - COUGH [None]
  - NASOPHARYNGITIS [None]
